FAERS Safety Report 4837065-9 (Version None)
Quarter: 2005Q4

REPORT INFORMATION
  Report Type: 
  Country: None (occurrence: None)
  Receive Date: 20051121
  Receipt Date: 20051121
  Transmission Date: 20060501
  Serious: No
  Sender: FDA-Public Use
  Company Number: None

PATIENT
  Age: 55 Year
  Sex: Male
  Weight: 98 kg

DRUGS (3)
  1. OXALIPLATIN -130 MG [Suspect]
     Indication: COLON CANCER
     Dosage: 130 MG IV
     Route: 042
     Dates: start: 20040901, end: 20041201
  2. LEUCOVORIN CALCIUM [Concomitant]
  3. FLUOROURACIL [Concomitant]

REACTIONS (6)
  - HYPERTENSION [None]
  - INFUSION RELATED REACTION [None]
  - PRURITUS [None]
  - SNEEZING [None]
  - TACHYCARDIA [None]
  - URTICARIA [None]
